FAERS Safety Report 9883813 (Version 2)
Quarter: 2014Q3

REPORT INFORMATION
  Report Type: Spontaneous
  Country: US (occurrence: US)
  Receive Date: 20140210
  Receipt Date: 20140822
  Transmission Date: 20150326
  Serious: Yes (Hospitalization, Other)
  Sender: FDA-Public Use
  Company Number: US-009507513-1402USA003585

PATIENT
  Sex: Female

DRUGS (1)
  1. NUVARING [Suspect]
     Active Substance: ETHINYL ESTRADIOL\ETONOGESTREL
     Indication: PRODUCT USED FOR UNKNOWN INDICATION
     Route: 067

REACTIONS (12)
  - Adenoidectomy [Unknown]
  - Petechiae [Unknown]
  - Varicose vein [Unknown]
  - Skin abrasion [Unknown]
  - Type 2 diabetes mellitus [Unknown]
  - Depression [Unknown]
  - Pulmonary embolism [Unknown]
  - Tonsillectomy [Unknown]
  - Appendicectomy [Unknown]
  - Injury [Unknown]
  - Anxiety [Unknown]
  - Peripheral swelling [Unknown]

NARRATIVE: CASE EVENT DATE: 201308
